FAERS Safety Report 16656378 (Version 1)
Quarter: 2019Q3

REPORT INFORMATION
  Report Type: Spontaneous
  Country: CA (occurrence: CA)
  Receive Date: 20190801
  Receipt Date: 20190801
  Transmission Date: 20191004
  Serious: Yes (Other)
  Sender: FDA-Public Use
  Company Number: CA-TEVA-2019-CA-1084953

PATIENT
  Sex: Male

DRUGS (2)
  1. PREDNISONE. [Suspect]
     Active Substance: PREDNISONE
     Route: 065
  2. PREDNISONE. [Suspect]
     Active Substance: PREDNISONE
     Indication: CROHN^S DISEASE
     Route: 065

REACTIONS (9)
  - Rectal ulcer [Unknown]
  - Vomiting [Not Recovered/Not Resolved]
  - Aphthous ulcer [Unknown]
  - Frequent bowel movements [Not Recovered/Not Resolved]
  - Large intestinal ulcer [Unknown]
  - Haematochezia [Not Recovered/Not Resolved]
  - Proctalgia [Unknown]
  - Anal stenosis [Unknown]
  - Mucous stools [Not Recovered/Not Resolved]
